FAERS Safety Report 21205818 (Version 1)
Quarter: 2022Q3

REPORT INFORMATION
  Report Type: Spontaneous
  Country: PT (occurrence: PT)
  Receive Date: 20220812
  Receipt Date: 20220812
  Transmission Date: 20221027
  Serious: Yes (Death)
  Sender: FDA-Public Use
  Company Number: None

PATIENT
  Age: 42 Year
  Sex: Female

DRUGS (8)
  1. TOPIRAMATE [Suspect]
     Active Substance: TOPIRAMATE
     Indication: Product used for unknown indication
     Dosage: TOPIRAMATO , UNIT DOSE :100 MG  , FREQUENCY TIME :  1 DAY
  2. HALOPERIDOL [Concomitant]
     Active Substance: HALOPERIDOL
     Indication: Product used for unknown indication
     Dosage: UNIT DOSE :5 MG  , FREQUENCY TIME :  1 DAY
  3. LEVOTHYROXINE [Concomitant]
     Active Substance: LEVOTHYROXINE
     Indication: Product used for unknown indication
     Dosage: UNIT DOSE : 150 MICROGRAM , FREQUENCY TIME :  1 DAY
  4. CLONAZEPAM [Concomitant]
     Active Substance: CLONAZEPAM
     Indication: Product used for unknown indication
     Dosage: 3+3+1 , UNIT DOSE : 7 MG , FREQUENCY TIME :  1 DAY
  5. OMEPRAZOLE [Concomitant]
     Active Substance: OMEPRAZOLE
     Indication: Product used for unknown indication
  6. QUETIAPINE [Concomitant]
     Active Substance: QUETIAPINE
     Indication: Product used for unknown indication
     Dosage: IN SOS , QUETIAPINE , UNIT DOSE : 200 MG
  7. CLOMIPRAMINE [Concomitant]
     Active Substance: CLOMIPRAMINE
     Indication: Product used for unknown indication
     Dosage: 150 MILLIGRAM DAILY; 75 MG BID ,CLOMIPRAMINE ,UNIT DOSE : 150 MG , FREQUENCY TIME :  1 DAY
  8. LITHIUM [Concomitant]
     Active Substance: LITHIUM
     Indication: Product used for unknown indication
     Dosage: LITIO , UNIT DOSE : 400 MG , FREQUENCY TIME :  1 DAY

REACTIONS (6)
  - Hyperthermia [Fatal]
  - Mydriasis [Fatal]
  - Cardiac dysfunction [Fatal]
  - Respiratory distress [Fatal]
  - Heat stroke [Fatal]
  - Haemoglobin decreased [Fatal]

NARRATIVE: CASE EVENT DATE: 20220710
